FAERS Safety Report 18044341 (Version 5)
Quarter: 2021Q3

REPORT INFORMATION
  Report Type: Spontaneous
  Country: US (occurrence: US)
  Receive Date: 20200720
  Receipt Date: 20210702
  Transmission Date: 20211014
  Serious: Yes (Other)
  Sender: FDA-Public Use
  Company Number: US-PFIZER INC-2020035326

PATIENT
  Age: 73 Year
  Sex: Female

DRUGS (1)
  1. LYRICA [Suspect]
     Active Substance: PREGABALIN
     Indication: PAIN IN EXTREMITY
     Dosage: 150 MG (1 DF AM,1?2 DF PM)
     Route: 048

REACTIONS (3)
  - Feeling abnormal [Unknown]
  - Systemic lupus erythematosus [Unknown]
  - Bedridden [Unknown]
